FAERS Safety Report 24084849 (Version 1)
Quarter: 2024Q3

REPORT INFORMATION
  Report Type: Spontaneous
  Country: US (occurrence: US)
  Receive Date: 20240712
  Receipt Date: 20240712
  Transmission Date: 20241017
  Serious: Yes (Other)
  Sender: FRESENIUS KABI
  Company Number: US-FreseniusKabi-FK202410413

PATIENT
  Age: 62 Year
  Sex: Female

DRUGS (4)
  1. PROPOFOL [Suspect]
     Active Substance: PROPOFOL
     Indication: Sedation
     Dosage: ROUTE OF ADMIN: INTRAVENOUS
     Dates: start: 2020, end: 2020
  2. PROPOFOL [Suspect]
     Active Substance: PROPOFOL
     Indication: Endotracheal intubation
  3. SOLU-MEDROL [Concomitant]
     Active Substance: METHYLPREDNISOLONE SODIUM SUCCINATE
     Indication: Multiple sclerosis
     Dosage: ROUTE OF ADMIN: INTRAVENOUS ( IV)
  4. PREDNISOLONE [Concomitant]
     Active Substance: PREDNISOLONE
     Indication: Multiple sclerosis
     Dosage: ROUT OF ADMIN: ORAL

REACTIONS (2)
  - Hallucination [Recovered/Resolved]
  - Hypersensitivity [Recovered/Resolved]

NARRATIVE: CASE EVENT DATE: 20200101
